FAERS Safety Report 5072564-9 (Version None)
Quarter: 2006Q3

REPORT INFORMATION
  Report Type: 
  Country: None (occurrence: None)
  Receive Date: 20060807
  Receipt Date: 20060725
  Transmission Date: 20061208
  Serious: Yes (Other)
  Sender: FDA-Public Use
  Company Number: PHBS2006BR11262

PATIENT
  Age: 46 Year
  Sex: Male
  Weight: 97 kg

DRUGS (3)
  1. OXCARBAZEPINE [Suspect]
     Dosage: 300 MG, Q8H
     Route: 048
  2. DIAZEPAM [Concomitant]
     Dosage: 20 MG, QHS
     Route: 048
  3. APETIL [Concomitant]
     Dosage: 2 DF, QHS
     Route: 048

REACTIONS (3)
  - AGGRESSION [None]
  - AGITATION [None]
  - DEPRESSION [None]
